FAERS Safety Report 12498204 (Version 1)
Quarter: 2016Q2

REPORT INFORMATION
  Report Type: Report from Study
  Country: US (occurrence: US)
  Receive Date: 20160627
  Receipt Date: 20160627
  Transmission Date: 20160815
  Serious: Yes (Other)
  Sender: FDA-Public Use
  Company Number: US-009507513-1606USA007219

PATIENT

DRUGS (3)
  1. TEMODAR [Suspect]
     Active Substance: TEMOZOLOMIDE
     Indication: GLIOBLASTOMA
     Dosage: 75 MG/M2, UNKNOWN, STANDARD CHEMOTHERAPY
     Route: 048
  2. DISULFIRAM. [Concomitant]
     Active Substance: DISULFIRAM
     Indication: GLIOBLASTOMA
     Dosage: 500 MG OR 1000 MG, QD
     Route: 048
  3. TEMODAR [Suspect]
     Active Substance: TEMOZOLOMIDE
     Indication: CHEMOTHERAPY
     Dosage: 150-200 MG/M2, CYCLICAL, ON DAYS 1-5 OF EVERY 28 DAY CYCLE FOR 6 CYCLES
     Route: 048

REACTIONS (1)
  - Thrombocytopenia [Unknown]
